FAERS Safety Report 19449951 (Version 2)
Quarter: 2021Q3

REPORT INFORMATION
  Report Type: Spontaneous
  Country: GB (occurrence: GB)
  Receive Date: 20210622
  Receipt Date: 20210723
  Transmission Date: 20211014
  Serious: Yes (Other)
  Sender: FDA-Public Use
  Company Number: GB-GLAXOSMITHKLINE-GBCH2021039398

PATIENT
  Age: 35 Year
  Sex: Female

DRUGS (4)
  1. MODERNA COVID?19 VACCINE [Suspect]
     Active Substance: CX-024414
     Indication: PRODUCT USED FOR UNKNOWN INDICATION
     Dosage: UNK, (DOSE 1)
     Route: 065
     Dates: start: 20210529
  2. BECLOMETHASONE [Suspect]
     Active Substance: BECLOMETHASONE
     Indication: PRODUCT USED FOR UNKNOWN INDICATION
     Dosage: UNK
     Route: 065
  3. IBUPROFEN. [Suspect]
     Active Substance: IBUPROFEN
     Indication: HEADACHE
     Dosage: UNK
     Route: 065
  4. CUPROFEN [Concomitant]
     Indication: MIGRAINE WITH AURA
     Dosage: UNK
     Route: 065
     Dates: start: 20210515, end: 20210515

REACTIONS (5)
  - Erythema [Recovered/Resolved]
  - Skin burning sensation [Recovered/Resolved]
  - Migraine with aura [Recovered/Resolved]
  - Headache [Recovered/Resolved]
  - Migraine [Recovered/Resolved]

NARRATIVE: CASE EVENT DATE: 20210529
